FAERS Safety Report 17001481 (Version 1)
Quarter: 2019Q4

REPORT INFORMATION
  Report Type: Report from Study
  Country: CR (occurrence: CR)
  Receive Date: 20191106
  Receipt Date: 20191106
  Transmission Date: 20200122
  Serious: Yes (Other)
  Sender: FDA-Public Use
  Company Number: CR-EMD SERONO-9127130

PATIENT
  Age: 65 Year
  Sex: Female

DRUGS (5)
  1. METFORMIN [Suspect]
     Active Substance: METFORMIN HYDROCHLORIDE
     Indication: PRODUCT USED FOR UNKNOWN INDICATION
     Route: 065
     Dates: end: 20180404
  2. EXFORGE HCT [Suspect]
     Active Substance: AMLODIPINE BESYLATE\HYDROCHLOROTHIAZIDE\VALSARTAN
     Indication: HYPERTENSION
     Dosage: AMLODIPINE 10 MG,HYDROCHLOROTHIAZIDE 25MG, VALSARTAN 320 MG
     Route: 065
     Dates: end: 20180719
  3. VILDAGLIPTIN + METFORMIN [Suspect]
     Active Substance: METFORMIN\VILDAGLIPTIN
     Indication: GLUCOSE TOLERANCE IMPAIRED
     Dosage: METFORMIN 1000 MG,VILDAGLIPTIN 50MG
     Route: 065
     Dates: end: 20180719
  4. GLIBENCLAMIDE [Suspect]
     Active Substance: GLYBURIDE
     Indication: PRODUCT USED FOR UNKNOWN INDICATION
     Route: 065
     Dates: end: 20180404
  5. CORENTEL [Concomitant]

REACTIONS (9)
  - Anxiety [Unknown]
  - Hypercalciuria [Unknown]
  - Breast cancer [Unknown]
  - Multi-organ disorder [Unknown]
  - Hypersensitivity [Recovered/Resolved]
  - Blood glucose increased [Recovering/Resolving]
  - Emotional distress [Unknown]
  - Blood pressure increased [Recovering/Resolving]
  - Glycosylated haemoglobin increased [Unknown]

NARRATIVE: CASE EVENT DATE: 201710
